FAERS Safety Report 10409006 (Version 1)
Quarter: 2014Q1

REPORT INFORMATION
  Report Type: Spontaneous
  Country: US (occurrence: None)
  Receive Date: 20130909
  Receipt Date: 20130909
  Transmission Date: 20141002
  Serious: Yes (Other)
  Sender: FDA-Public Use
  Company Number: 375739N

PATIENT
  Age: 69 Year
  Sex: Female
  Weight: 118.39 kg

DRUGS (10)
  1. VICTOZA (LIRAGLUTIDE) SOLUTION FOR INJECTION, 6MG/ML [Suspect]
     Indication: TYPE 2 DIABETES MELLITUS
     Route: 058
     Dates: start: 20120828, end: 20130327
  2. NOVOLOG (INSULIN ASPART) SOLUTION FOR INJECTION [Concomitant]
  3. ATORVASTATIN [Concomitant]
  4. GABAPENTIN [Concomitant]
  5. LANTUS (INSULIN GLARGINE) [Concomitant]
  6. LEVOTHYROXINE [Concomitant]
  7. LOSARTAN [Concomitant]
  8. METOPROLOL [Concomitant]
  9. OMEPRAZOLE [Concomitant]
  10. ZOSTAVAX (VARICELLA ZOSTER VACCINE) [Concomitant]

REACTIONS (1)
  - Pancreatitis chronic [None]
